FAERS Safety Report 8167735-9 (Version None)
Quarter: 2012Q1

REPORT INFORMATION
  Report Type: 
  Country: None (occurrence: None)
  Receive Date: 20120221
  Receipt Date: 20120207
  Transmission Date: 20120608
  Serious: Yes (Other)
  Sender: FDA-Public Use
  Company Number: 2011P1008666

PATIENT
  Age: 55 Year
  Sex: Female
  Weight: 77.1115 kg

DRUGS (6)
  1. TERCONAZOLE [Suspect]
     Indication: VULVOVAGINAL MYCOTIC INFECTION
     Dosage: 1 APPLICATIOR, QHS, VAG
     Route: 067
     Dates: start: 20110801, end: 20110801
  2. PREDNISOLONE [Suspect]
     Dates: start: 20110901
  3. BISMUTH SUBSALICYLATE [Suspect]
     Indication: ABDOMINAL PAIN UPPER
  4. PRILOSEC [Concomitant]
  5. XANAX [Concomitant]
  6. MONOPRIL [Concomitant]

REACTIONS (28)
  - COUGH [None]
  - DRUG HYPERSENSITIVITY [None]
  - THERMAL BURN [None]
  - PALLOR [None]
  - PAIN OF SKIN [None]
  - THROAT IRRITATION [None]
  - ERYTHEMA [None]
  - LOCAL SWELLING [None]
  - SWELLING FACE [None]
  - THROAT TIGHTNESS [None]
  - SUNBURN [None]
  - SKIN BURNING SENSATION [None]
  - SKIN EXFOLIATION [None]
  - RASH ERYTHEMATOUS [None]
  - NECK PAIN [None]
  - SKIN INDURATION [None]
  - SKIN DISORDER [None]
  - ABDOMINAL PAIN UPPER [None]
  - DIARRHOEA [None]
  - SKIN TIGHTNESS [None]
  - DRY SKIN [None]
  - SOFT TISSUE DISORDER [None]
  - ANXIETY [None]
  - DYSPNOEA [None]
  - SKIN DISCOLOURATION [None]
  - PRURITUS [None]
  - SCAR [None]
  - BLISTER [None]
